FAERS Safety Report 11422039 (Version 1)
Quarter: 2015Q3

REPORT INFORMATION
  Report Type: Spontaneous
  Country: US (occurrence: None)
  Receive Date: 20150826
  Receipt Date: 20150826
  Transmission Date: 20151125
  Serious: Yes (Death)
  Sender: FDA-Public Use
  Company Number: None

PATIENT
  Age: 61 Year
  Sex: Male
  Weight: 157 kg

DRUGS (29)
  1. MANNITOL (OSMITROL) [Concomitant]
  2. AMLODIPINE (NORVASC) [Concomitant]
  3. NACL 0.9% [Concomitant]
     Active Substance: SODIUM CHLORIDE
  4. FENTANYL (SUBLIMAZE) [Concomitant]
  5. CHLORHEXIDINE GLUCONATE (PERIDEX) [Concomitant]
  6. NICARDIPINE (CARDENE) [Concomitant]
  7. SODIUM PHOSPHATE [Concomitant]
     Active Substance: SODIUM PHOSPHATE
  8. HEPARIN [Suspect]
     Active Substance: HEPARIN SODIUM
     Indication: ANTICOAGULANT THERAPY
     Dosage: IV INFUSION CONTINOUS INTRAVENOUS
     Route: 042
     Dates: start: 20150817, end: 20150824
  9. PROTAMINE [Concomitant]
     Active Substance: PROTAMINE
  10. PANTOPRAZOLE (PROTONIX) [Concomitant]
  11. BISACODYL (DULCOLAX) [Concomitant]
  12. HEPARIN [Concomitant]
     Active Substance: HEPARIN SODIUM
  13. TYLENOL [Concomitant]
     Active Substance: ACETAMINOPHEN
  14. CHOLECALCIFEROL (VITAMIN D3) [Concomitant]
  15. LISINOPRIL (ZESTRIL, PRINIVIL) [Concomitant]
  16. HYDRALAZINE (APRESOLINE) [Concomitant]
  17. PROPYLTHIOURACIL. [Concomitant]
     Active Substance: PROPYLTHIOURACIL
  18. HEPARIN [Suspect]
     Active Substance: HEPARIN SODIUM
     Indication: ATRIAL FIBRILLATION
     Dosage: IV INFUSION CONTINOUS INTRAVENOUS
     Route: 042
     Dates: start: 20150817, end: 20150824
  19. POLYETHYLENE GLYCOL (MIRALAX, GLYCOLAX) [Concomitant]
  20. MAGNESIUM SULFATE. [Concomitant]
     Active Substance: MAGNESIUM SULFATE
  21. DOCUSATE (COLACE) [Concomitant]
  22. LIPITOR [Concomitant]
     Active Substance: ATORVASTATIN CALCIUM
  23. MULTIVITAMINS (VI-DAYLIN) [Concomitant]
  24. ZOFRAN [Concomitant]
     Active Substance: ONDANSETRON HYDROCHLORIDE
  25. MEROPENEM (MERREM) [Concomitant]
  26. VANCOMYCIN [Concomitant]
     Active Substance: VANCOMYCIN
  27. POTASSIUM CHLORIDE. [Concomitant]
     Active Substance: POTASSIUM CHLORIDE
  28. LABETALOL (NORMODYNE) [Concomitant]
  29. ESCITALOPRAM OXALATE (LEXAPRO) [Concomitant]

REACTIONS (2)
  - Cerebral haemorrhage [None]
  - Intracranial pressure increased [None]

NARRATIVE: CASE EVENT DATE: 20150824
